FAERS Safety Report 18464803 (Version 2)
Quarter: 2020Q4

REPORT INFORMATION
  Report Type: Report from Study
  Country: None (occurrence: BG)
  Receive Date: 20201105
  Receipt Date: 20201207
  Transmission Date: 20210114
  Serious: Yes (Other)
  Sender: FDA-Public Use
  Company Number: BG-ABBVIE-20K-022-3633225-00

PATIENT
  Age: 38 Year
  Sex: Female

DRUGS (1)
  1. HUMIRA [Suspect]
     Active Substance: ADALIMUMAB
     Indication: PSORIATIC ARTHROPATHY
     Route: 058
     Dates: start: 202004

REACTIONS (4)
  - Infertility [Unknown]
  - Abortion induced [Unknown]
  - Maternal exposure during pregnancy [Unknown]
  - Foetal damage [Unknown]

NARRATIVE: CASE EVENT DATE: 2020
